FAERS Safety Report 7681278-8 (Version None)
Quarter: 2011Q3

REPORT INFORMATION
  Report Type: 
  Country: None (occurrence: None)
  Receive Date: 20110809
  Receipt Date: 20110727
  Transmission Date: 20111222
  Serious: Yes (Hospitalization, Disabling, Other)
  Sender: FDA-Public Use
  Company Number: 2011SP017557

PATIENT
  Age: 31 Year
  Sex: Female
  Weight: 99.7913 kg

DRUGS (2)
  1. NUVARING [Suspect]
     Indication: CONTRACEPTION
     Dates: start: 20071009, end: 20071220
  2. LEVOTHYROXINE SODIUM [Concomitant]

REACTIONS (22)
  - PAIN IN EXTREMITY [None]
  - FALL [None]
  - DEPRESSION [None]
  - ANAEMIA [None]
  - PULMONARY MASS [None]
  - JOINT INJURY [None]
  - URINARY TRACT INFECTION [None]
  - VENA CAVA THROMBOSIS [None]
  - LYMPHOMA [None]
  - SUICIDAL IDEATION [None]
  - TRACHEAL MASS [None]
  - ATELECTASIS [None]
  - FLANK PAIN [None]
  - DEEP VEIN THROMBOSIS [None]
  - ILIAC VEIN OCCLUSION [None]
  - PLEURAL EFFUSION [None]
  - SKIN DISCOLOURATION [None]
  - ENTEROCOCCUS TEST POSITIVE [None]
  - SKIN ULCER [None]
  - ACTIVITIES OF DAILY LIVING IMPAIRED [None]
  - HYPERCOAGULATION [None]
  - IMPAIRED WORK ABILITY [None]
